FAERS Safety Report 17771793 (Version 3)
Quarter: 2020Q4

REPORT INFORMATION
  Report Type: Spontaneous
  Country: US (occurrence: US)
  Receive Date: 20200512
  Receipt Date: 20201215
  Transmission Date: 20210113
  Serious: Yes (Other)
  Sender: FDA-Public Use
  Company Number: US-GILEAD-2020-0465713

PATIENT
  Sex: Male

DRUGS (4)
  1. TRUVADA [Suspect]
     Active Substance: EMTRICITABINE\TENOFOVIR DISOPROXIL FUMARATE
     Indication: HIV INFECTION
     Dosage: UNK
     Route: 048
     Dates: start: 201412, end: 201502
  2. DESCOVY [Concomitant]
     Active Substance: EMTRICITABINE\TENOFOVIR ALAFENAMIDE FUMARATE
  3. VIREAD [Suspect]
     Active Substance: TENOFOVIR DISOPROXIL FUMARATE
     Indication: HIV INFECTION
     Dosage: UNK
     Route: 048
     Dates: start: 201412, end: 201502
  4. ATRIPLA [Suspect]
     Active Substance: EFAVIRENZ\EMTRICITABINE\TENOFOVIR DISOPROXIL FUMARATE
     Indication: HIV INFECTION
     Dosage: UNK
     Route: 048
     Dates: start: 201206, end: 201509

REACTIONS (14)
  - Chronic kidney disease [Unknown]
  - Renal impairment [Recovered/Resolved]
  - Anxiety [Unknown]
  - Osteoporosis [Unknown]
  - Anhedonia [Unknown]
  - Bone loss [Unknown]
  - Blood creatinine increased [Recovered/Resolved]
  - Emotional distress [Unknown]
  - Osteonecrosis [Unknown]
  - Bone density decreased [Unknown]
  - Tooth loss [Not Recovered/Not Resolved]
  - Renal failure [Unknown]
  - Multiple fractures [Not Recovered/Not Resolved]
  - Pain [Unknown]

NARRATIVE: CASE EVENT DATE: 2015
